FAERS Safety Report 5866135-1 (Version None)
Quarter: 2008Q3

REPORT INFORMATION
  Report Type: 
  Country: None (occurrence: None)
  Receive Date: 20080829
  Receipt Date: 20080819
  Transmission Date: 20090109
  Serious: Yes (Death, Other)
  Sender: FDA-Public Use
  Company Number: TR-PFIZER INC-2008069563

PATIENT
  Sex: Male

DRUGS (1)
  1. METHYLPREDNISOLONE ACETATE [Suspect]

REACTIONS (4)
  - BLOOD PRESSURE DECREASED [None]
  - DEATH [None]
  - HEART RATE INCREASED [None]
  - INJECTION SITE REACTION [None]
